FAERS Safety Report 6958162-8 (Version None)
Quarter: 2010Q3

REPORT INFORMATION
  Report Type: 
  Country: None (occurrence: None)
  Receive Date: 20100831
  Receipt Date: 20100819
  Transmission Date: 20110219
  Serious: Yes (Other)
  Sender: FDA-Public Use
  Company Number: ES-PFIZER INC-2010105701

PATIENT
  Age: 50 Year
  Sex: Female
  Weight: 50 kg

DRUGS (2)
  1. UROTROL NEO [Suspect]
     Indication: HYPERTONIC BLADDER
     Dosage: 4 MG, 1X/DAY
     Route: 048
     Dates: start: 20100816, end: 20100819
  2. METAMIZOL ^NORMON^ [Concomitant]
     Indication: FRACTURED COCCYX
     Dosage: UNK
     Route: 048

REACTIONS (2)
  - ACNE [None]
  - DRUG HYPERSENSITIVITY [None]
